FAERS Safety Report 19020483 (Version 1)
Quarter: 2021Q1

REPORT INFORMATION
  Report Type: Spontaneous
  Country: JP (occurrence: JP)
  Receive Date: 20210317
  Receipt Date: 20210317
  Transmission Date: 20210420
  Serious: Yes (Hospitalization)
  Sender: FDA-Public Use
  Company Number: JP-JT-EVA202100083KERYXP

PATIENT
  Age: 9 Decade
  Sex: Male

DRUGS (1)
  1. RIONA [Suspect]
     Active Substance: FERRIC CITRATE ANHYDROUS
     Dosage: UNK
     Route: 048

REACTIONS (2)
  - Dysphagia [Recovered/Resolved]
  - Cerebral infarction [Unknown]
